FAERS Safety Report 7084147-X (Version None)
Quarter: 2010Q4

REPORT INFORMATION
  Report Type: 
  Country: None (occurrence: None)
  Receive Date: 20101104
  Receipt Date: 20101014
  Transmission Date: 20110411
  Serious: Yes (Hospitalization, Other)
  Sender: FDA-Public Use
  Company Number: US-BAYER-200944106NA

PATIENT
  Age: 17 Year
  Sex: Female
  Weight: 64 kg

DRUGS (6)
  1. YAZ [Suspect]
     Indication: PRODUCT USED FOR UNKNOWN INDICATION
     Route: 048
  2. YASMIN [Suspect]
     Indication: ACNE
     Route: 048
     Dates: start: 20010201, end: 20080101
  3. ADVAIR (NOS) [Concomitant]
     Indication: PRODUCT USED FOR UNKNOWN INDICATION
  4. VITAMIN C OCT (NOS) [Concomitant]
     Indication: PRODUCT USED FOR UNKNOWN INDICATION
  5. ATIVAN [Concomitant]
     Indication: ANXIETY
     Dosage: ABOUT 1 YEAR
  6. PAROXETINE HCL [Concomitant]
     Indication: ANXIETY
     Dosage: ABOUT 1 YEAR

REACTIONS (2)
  - THROMBOSIS [None]
  - UTERINE HAEMORRHAGE [None]
